FAERS Safety Report 9138259 (Version 1)
Quarter: 2013Q1

REPORT INFORMATION
  Report Type: Spontaneous
  Country: JP (occurrence: JP)
  Receive Date: 20130305
  Receipt Date: 20130305
  Transmission Date: 20140127
  Serious: Yes (Other)
  Sender: FDA-Public Use
  Company Number: JP-009507513-1303JPN000591

PATIENT
  Age: 71 Year
  Sex: Female

DRUGS (10)
  1. EMEND [Suspect]
     Indication: PROPHYLAXIS OF NAUSEA AND VOMITING
     Dosage: 80 MG, UNK
     Route: 048
  2. EMEND [Suspect]
     Dosage: 125 MG, UNK
  3. DEXAMETHASONE SODIUM PHOSPHATE [Suspect]
     Indication: PROPHYLAXIS OF NAUSEA AND VOMITING
     Dosage: 10 MG DAILY
     Route: 042
  4. DEXAMETHASONE SODIUM PHOSPHATE [Suspect]
     Dosage: 4 MG DAILY
     Route: 042
  5. DEXAMETHASONE SODIUM PHOSPHATE [Suspect]
     Dosage: 2 MG DAILY
     Route: 042
  6. OXALIPLATIN [Concomitant]
  7. CAPECITABINE [Concomitant]
  8. PALONOSETRON HYDROCHLORIDE [Concomitant]
  9. HUMALOG MIX [Concomitant]
  10. PIOGLITAZONE HYDROCHLORIDE [Concomitant]

REACTIONS (2)
  - Blood glucose increased [Recovering/Resolving]
  - Hyperglycaemia [Recovering/Resolving]
